FAERS Safety Report 8494985-4 (Version None)
Quarter: 2012Q3

REPORT INFORMATION
  Report Type: 
  Country: None (occurrence: None)
  Receive Date: 20120709
  Receipt Date: 20120604
  Transmission Date: 20120928
  Serious: Yes (Other)
  Sender: FDA-Public Use
  Company Number: TW-MERCK SHARP & DOHME-1205USA04044

PATIENT

DRUGS (1)
  1. PROSCAR [Suspect]
     Indication: BENIGN PROSTATIC HYPERPLASIA
     Dosage: 5 MG, QD
     Route: 048
     Dates: start: 20120516, end: 20120501

REACTIONS (3)
  - DEPRESSION [None]
  - DRUG DISPENSING ERROR [None]
  - MEDICATION ERROR [None]
